FAERS Safety Report 5760463-6 (Version None)
Quarter: 2008Q2

REPORT INFORMATION
  Report Type: 
  Country: None (occurrence: None)
  Receive Date: 20080605
  Receipt Date: 20080527
  Transmission Date: 20081010
  Serious: Yes (Other)
  Sender: FDA-Public Use
  Company Number: GB-PFIZER INC-2008046080

PATIENT
  Age: 44 Year
  Sex: Female

DRUGS (3)
  1. CHANTIX [Suspect]
     Dates: start: 20080415, end: 20080513
  2. CERAZETTE [Concomitant]
  3. NASONEX [Concomitant]

REACTIONS (5)
  - CRYING [None]
  - DEPRESSION [None]
  - HOT FLUSH [None]
  - HYPERHIDROSIS [None]
  - TREMOR [None]
